FAERS Safety Report 9665171 (Version 1)
Quarter: 2013Q4

REPORT INFORMATION
  Report Type: Report from Study
  Country: TR (occurrence: TR)
  Receive Date: 20131103
  Receipt Date: 20131103
  Transmission Date: 20140711
  Serious: Yes (Other)
  Sender: FDA-Public Use
  Company Number: TR-US-EMD SERONO, INC.-7246479

PATIENT
  Sex: Female
  Weight: 70 kg

DRUGS (4)
  1. REBIF [Suspect]
     Indication: MULTIPLE SCLEROSIS
     Route: 058
     Dates: start: 201104
  2. TAMOL [Suspect]
     Indication: ANALGESIC THERAPY
     Route: 048
     Dates: start: 201104
  3. TAMOL [Suspect]
     Indication: ANTIPYRESIS
  4. CIPRALEX [Suspect]
     Indication: ANTIDEPRESSANT THERAPY
     Route: 048
     Dates: start: 2012

REACTIONS (2)
  - Epilepsy [Unknown]
  - Toothache [Not Recovered/Not Resolved]
